FAERS Safety Report 5597833-5 (Version None)
Quarter: 2007Q4

REPORT INFORMATION
  Report Type: 
  Country: None (occurrence: None)
  Receive Date: 20071221
  Receipt Date: 20061222
  Transmission Date: 20080405
  Serious: Yes (Other)
  Sender: FDA-Public Use
  Company Number: US-2006-010878

PATIENT
  Sex: Female

DRUGS (1)
  1. CLIMARA PRO [Suspect]
     Dosage: 0.045/.015 MG/D, CONT, TRANSDERMAL
     Route: 062

REACTIONS (1)
  - BLOOD PRESSURE INCREASED [None]
